FAERS Safety Report 5755128-0 (Version None)
Quarter: 2008Q2

REPORT INFORMATION
  Report Type: 
  Country: None (occurrence: None)
  Receive Date: 20080602
  Receipt Date: 20080523
  Transmission Date: 20081010
  Serious: Yes (Other)
  Sender: FDA-Public Use
  Company Number: US-JNJFOC-20071201113

PATIENT
  Sex: Male
  Weight: 103.3 kg

DRUGS (9)
  1. PROPULSID [Suspect]
     Route: 048
  2. PROPULSID [Suspect]
     Indication: GASTROINTESTINAL DISORDER
     Dosage: STARTED PRE TRIAL
     Route: 048
  3. HUMAN INSULIN [Concomitant]
     Indication: TYPE 1 DIABETES MELLITUS
     Dosage: DOSE GIVEN AS : 50-55 UNITS DAILY VIA PUMP OVER 24 HOURS + PER BOLUS ACCORDING TO GLUCOSE READINGS
     Route: 030
  4. VITAMIN CAP [Concomitant]
     Indication: PROPHYLAXIS
     Route: 048
  5. ASCORBIC ACID [Concomitant]
     Indication: PROPHYLAXIS
     Route: 048
  6. ASPIRIN [Concomitant]
     Indication: PROPHYLAXIS
     Route: 048
  7. PROTONIX [Concomitant]
     Indication: IMPAIRED GASTRIC EMPTYING
     Route: 048
  8. SLO MAG [Concomitant]
     Indication: HYPOMAGNESAEMIA
     Route: 048
  9. LISINOPRIL [Concomitant]
     Indication: BLOOD PRESSURE ABNORMAL
     Route: 048

REACTIONS (1)
  - ELECTROCARDIOGRAM QT PROLONGED [None]
